FAERS Safety Report 13784604 (Version 2)
Quarter: 2017Q4

REPORT INFORMATION
  Report Type: Spontaneous
  Country: US (occurrence: US)
  Receive Date: 20170724
  Receipt Date: 20171024
  Transmission Date: 20180320
  Serious: No
  Sender: FDA-Public Use
  Company Number: US-IMPAX LABORATORIES, INC-2017-IPXL-01342

PATIENT
  Sex: Male
  Weight: 79 kg

DRUGS (5)
  1. RYTARY [Suspect]
     Active Substance: CARBIDOPA\LEVODOPA
     Dosage: 23.75/95MG, 2 CAPSULE, 3 TIMES DAILY
     Route: 048
     Dates: start: 201705, end: 201705
  2. CARBIDOPA-LEVODOPA ER [Suspect]
     Active Substance: CARBIDOPA\LEVODOPA
     Dosage: 1 DF, 3 /DAY
     Route: 065
  3. RYTARY [Suspect]
     Active Substance: CARBIDOPA\LEVODOPA
     Indication: PARKINSON^S DISEASE
     Dosage: 23.75/95MG, 1 CAPSULE, 3 TIMES DAILY
     Route: 048
     Dates: start: 20170427
  4. CARBIDOPA-LEVODOPA ER [Suspect]
     Active Substance: CARBIDOPA\LEVODOPA
     Indication: PARKINSON^S DISEASE
     Dosage: UNK
     Route: 065
  5. CARBIDOPA-LEVODOPA ER [Suspect]
     Active Substance: CARBIDOPA\LEVODOPA
     Dosage: HALF A TABLET, UNK
     Route: 065

REACTIONS (4)
  - Gait disturbance [Recovering/Resolving]
  - Dyskinesia [Recovered/Resolved]
  - Tremor [Recovering/Resolving]
  - Drug ineffective [Unknown]
